FAERS Safety Report 6441751-7 (Version None)
Quarter: 2009Q4

REPORT INFORMATION
  Report Type: 
  Country: None (occurrence: None)
  Receive Date: 20091116
  Receipt Date: 20091111
  Transmission Date: 20100525
  Serious: Yes (Death, Life-Threatening, Hospitalization)
  Sender: FDA-Public Use
  Company Number: US-BRISTOL-MYERS SQUIBB COMPANY-14853576

PATIENT
  Age: 70 Year
  Sex: Male
  Weight: 88 kg

DRUGS (18)
  1. CISPLATIN [Suspect]
     Indication: NON-SMALL CELL LUNG CANCER
     Dosage: LAST DOSE ON 20OCT09
     Route: 042
     Dates: start: 20090721
  2. ALIMTA [Suspect]
     Indication: NON-SMALL CELL LUNG CANCER
     Dosage: LAST DOSE ON 20OCT09
     Route: 042
     Dates: start: 20090721
  3. RADIATION THERAPY [Suspect]
     Indication: NON-SMALL CELL LUNG CANCER
     Dosage: LAST DOSE ON 11SEP09
     Route: 065
     Dates: start: 20090721
  4. FOLIC ACID [Concomitant]
     Dates: start: 20090706, end: 20091104
  5. PREVACID [Concomitant]
     Dates: start: 20090818
  6. CARAFATE [Concomitant]
     Dates: start: 20090818
  7. DEXAMETHASONE [Concomitant]
     Dates: start: 20090721
  8. PALONOSETRON [Concomitant]
     Dates: start: 20090721
  9. PROCHLORPERAZINE [Concomitant]
     Dates: start: 20090721
  10. ZOFRAN [Concomitant]
     Dates: start: 20090728
  11. ALLOPURINOL [Concomitant]
     Dosage: TABLET
  12. GLYBURIDE [Concomitant]
     Dosage: TABLET
  13. MIRTAZAPINE [Concomitant]
     Dosage: TABLET
  14. NIACIN [Concomitant]
     Dosage: CAPSULE;CONTROLLED RELEASE
  15. POTASSIUM CHLORIDE [Concomitant]
     Dosage: TABLET
  16. SLOW FE [Concomitant]
     Dosage: TABLET
     Dates: start: 20090901
  17. VITAMIN C TABS [Concomitant]
  18. VIVARIN [Concomitant]
     Dosage: TABLET

REACTIONS (1)
  - MYOCARDIAL INFARCTION [None]
